FAERS Safety Report 4932027-5 (Version None)
Quarter: 2006Q1

REPORT INFORMATION
  Report Type: 
  Country: None (occurrence: None)
  Receive Date: 20060303
  Receipt Date: 20050920
  Transmission Date: 20060701
  Serious: Yes (Death, Hospitalization, Other)
  Sender: FDA-Public Use
  Company Number: FR-BRISTOL-MYERS SQUIBB COMPANY-13118518

PATIENT
  Age: 42 Year
  Sex: Male
  Weight: 57 kg

DRUGS (15)
  1. REYATAZ [Suspect]
     Indication: HIV INFECTION
     Route: 048
     Dates: start: 20050419, end: 20050914
  2. VIDEX [Suspect]
     Route: 048
     Dates: start: 20050419
  3. NORVIR [Suspect]
     Dosage: 100 MG X2/DAY ON 14-SEP-2005
     Dates: start: 20050419
  4. EMTRIVA [Suspect]
     Dates: start: 20050419, end: 20050914
  5. COMBIVIR [Suspect]
     Dates: start: 20050914
  6. CRIXIVAN [Suspect]
  7. FUZEON [Suspect]
     Dosage: 2 INJECTIONS
     Dates: start: 20050914, end: 20051030
  8. MORPHINE SULFATE [Concomitant]
  9. AZANTAC [Concomitant]
  10. OMEPRAZOLE [Concomitant]
     Route: 042
  11. TRIFLUCAN [Concomitant]
     Route: 042
  12. CLONAZEPAM [Concomitant]
     Route: 042
  13. PERFALGAN [Concomitant]
     Route: 042
  14. BACTRIM [Concomitant]
  15. KABIVEN [Concomitant]

REACTIONS (5)
  - BLOOD BILIRUBIN INCREASED [None]
  - BLOOD CHOLESTEROL INCREASED [None]
  - LOW DENSITY LIPOPROTEIN INCREASED [None]
  - PROGRESSIVE MULTIFOCAL LEUKOENCEPHALOPATHY [None]
  - VIRAL MUTATION IDENTIFIED [None]
